FAERS Safety Report 8157510-3 (Version None)
Quarter: 2012Q1

REPORT INFORMATION
  Report Type: 
  Country: None (occurrence: None)
  Receive Date: 20120222
  Receipt Date: 20120213
  Transmission Date: 20120608
  Serious: Yes (Other)
  Sender: FDA-Public Use
  Company Number: PL-PFIZER INC-2012045660

PATIENT
  Age: 74 Year
  Sex: Female

DRUGS (6)
  1. RAMIPRIL [Suspect]
     Indication: ESSENTIAL HYPERTENSION
     Dosage: 10 MG, DAILY
     Route: 048
     Dates: start: 20110301
  2. BISOPROLOL FUMARATE [Concomitant]
     Dosage: UNK
     Dates: start: 20110301
  3. ROSUVASTATIN [Suspect]
     Indication: MYOCARDIAL ISCHAEMIA
     Dosage: 10 MG, DAILY
     Route: 048
     Dates: start: 20110301
  4. METFORMIN HYDROCHLORIDE [Suspect]
     Indication: DIABETES MELLITUS
     Dosage: 1700 MG, DAILY
     Route: 048
     Dates: start: 20110301
  5. ACETYLSALICYLIC ACID [Concomitant]
     Dosage: UNK
     Dates: start: 20090101
  6. NOVOMIX [Concomitant]
     Dosage: UNK
     Dates: start: 20110301

REACTIONS (2)
  - TRANSIENT ISCHAEMIC ATTACK [None]
  - HEADACHE [None]
